FAERS Safety Report 16088046 (Version 6)
Quarter: 2023Q1

REPORT INFORMATION
  Report Type: Other
  Country: NL (occurrence: None)
  Receive Date: 20190319
  Receipt Date: 20230206
  Transmission Date: 20230417
  Serious: Yes (Hospitalization)
  Sender: FDA-Public Use
  Company Number: NL-ROCHE-2280171

PATIENT
  Age: 35 Year
  Sex: Female
  Weight: 51 kg

DRUGS (11)
  1. OCRELIZUMAB [Suspect]
     Active Substance: OCRELIZUMAB
     Indication: Multiple sclerosis
     Dosage: (250 ML)
     Route: 042
     Dates: start: 20181217
  2. OCRELIZUMAB [Suspect]
     Active Substance: OCRELIZUMAB
     Route: 042
     Dates: start: 20181203
  3. OCRELIZUMAB [Suspect]
     Active Substance: OCRELIZUMAB
     Dosage: 500 ML,??SUBSEQUENT DOSE RECEIVED ON 24/DEC/2019, 29/JUN/2020, 02/FEB/2021, 02/SEP/2021, 06/APR/2022
     Route: 042
     Dates: start: 20190618
  4. PHENIRAMINE [Concomitant]
     Active Substance: PHENIRAMINE
     Indication: Premedication
     Dosage: 1 AMULE.?SAME DOSE ON 17/DEC/2018
     Route: 042
     Dates: start: 20181203
  5. DEKORT [Concomitant]
     Active Substance: DEXAMETHASONE
     Indication: Premedication
     Dosage: 1 AMULE.?SAME DOSE ON 17/DEC/2018
     Route: 042
     Dates: start: 20181203
  6. DALFAMPRIDINE [Concomitant]
     Active Substance: DALFAMPRIDINE
     Route: 048
     Dates: start: 2013
  7. FORPACK [Concomitant]
     Route: 048
     Dates: start: 201904
  8. AVIJECT [Concomitant]
     Indication: Premedication
     Route: 011
     Dates: start: 20190618, end: 20190618
  9. DEXOJECT [Concomitant]
     Indication: Premedication
     Dates: start: 20190618, end: 20190618
  10. TAMOL (TURKEY) [Concomitant]
     Indication: Premedication
     Route: 048
     Dates: start: 20190618, end: 20190618
  11. TAMOL (TURKEY) [Concomitant]
     Route: 048
     Dates: start: 20181203, end: 20181203

REACTIONS (2)
  - Cellulitis [Recovered/Resolved]
  - Abscess oral [Recovered/Resolved]

NARRATIVE: CASE EVENT DATE: 20190124
